FAERS Safety Report 21884688 (Version 1)
Quarter: 2023Q1

REPORT INFORMATION
  Report Type: Spontaneous
  Country: FR (occurrence: None)
  Receive Date: 20230119
  Receipt Date: 20230119
  Transmission Date: 20230417
  Serious: Yes (Life-Threatening, Other)
  Sender: FDA-Public Use
  Company Number: FR-ROCHE-3267470

PATIENT
  Age: 18 Year
  Sex: Male

DRUGS (6)
  1. RIVOTRIL [Suspect]
     Active Substance: CLONAZEPAM
     Indication: Anxiolytic therapy
     Route: 065
  2. LYRICA [Suspect]
     Active Substance: PREGABALIN
     Indication: Anxiolytic therapy
     Route: 065
  3. LAMICTAL [Suspect]
     Active Substance: LAMOTRIGINE
     Indication: Product used for unknown indication
     Route: 065
  4. ETOMIDATE [Suspect]
     Active Substance: ETOMIDATE
     Indication: Sedation
     Route: 065
  5. SUCCINYLCHOLINE [Suspect]
     Active Substance: SUCCINYLCHOLINE
     Indication: Sedation
     Route: 065
  6. COCAINE HYDROCHLORIDE [Concomitant]
     Active Substance: COCAINE HYDROCHLORIDE
     Indication: Product used for unknown indication

REACTIONS (2)
  - Coma [Recovered/Resolved]
  - Substance use disorder [Recovering/Resolving]
